FAERS Safety Report 17949994 (Version 1)
Quarter: 2020Q2

REPORT INFORMATION
  Report Type: Report from Study
  Country: None (occurrence: RO)
  Receive Date: 20200625
  Receipt Date: 20200625
  Transmission Date: 20200714
  Serious: Yes (Death)
  Sender: FDA-Public Use
  Company Number: RO-ABBVIE-20K-135-3459831-00

PATIENT
  Age: 79 Year
  Sex: Female

DRUGS (1)
  1. DUODOPA [Suspect]
     Active Substance: CARBIDOPA\LEVODOPA
     Indication: PARKINSON^S DISEASE
     Dosage: DM=11 DC=5.80 ED=2.50 NRED=0 DMN=0.DCN=0 EDN=0,NREDN=0,STRENGTH: 20 MG/ML 5 MG/ML
     Route: 050
     Dates: start: 20170717, end: 20200623

REACTIONS (3)
  - Cardio-respiratory arrest [Fatal]
  - Somnolence [Not Recovered/Not Resolved]
  - Food refusal [Not Recovered/Not Resolved]

NARRATIVE: CASE EVENT DATE: 202006
